FAERS Safety Report 6274763-7 (Version None)
Quarter: 2009Q3

REPORT INFORMATION
  Report Type: 
  Country: None (occurrence: None)
  Receive Date: 20090717
  Receipt Date: 20090628
  Transmission Date: 20100115
  Serious: Yes (Other)
  Sender: FDA-Public Use
  Company Number: CHNY2009DK02585

PATIENT
  Age: 46 Year
  Sex: Female

DRUGS (1)
  1. NICOTINE [Suspect]
     Dosage: 10 GUMS DAILY, CHEWED

REACTIONS (1)
  - DRUG DEPENDENCE [None]
